FAERS Safety Report 7322207-6 (Version None)
Quarter: 2011Q1

REPORT INFORMATION
  Report Type: 
  Country: None (occurrence: None)
  Receive Date: 20110301
  Receipt Date: 20110216
  Transmission Date: 20110831
  Serious: Yes (Other)
  Sender: FDA-Public Use
  Company Number: BR-PAR PHARMACEUTICAL, INC-2010SCPR002360

PATIENT
  Sex: Female
  Weight: 80 kg

DRUGS (2)
  1. CAPOTEN [Suspect]
     Indication: HYPERTENSION
     Dosage: ONE TABLET OF 25 MG, BID
     Route: 048
     Dates: end: 20110105
  2. CAPOTEN [Suspect]
     Dosage: 2 TABLETS OF 25 MG IN THE MORNING, 1 TABLET OF 25 MG IN THE AFTERNOON AND 1 TABLET OF 25 MG AT NIGHT
     Route: 048

REACTIONS (10)
  - ARRHYTHMIA [None]
  - PRODUCT QUALITY ISSUE [None]
  - WEIGHT INCREASED [None]
  - JOINT SWELLING [None]
  - CHEST PAIN [None]
  - HYPERTENSION [None]
  - ASTHENIA [None]
  - DRUG INEFFECTIVE [None]
  - HEADACHE [None]
  - MYALGIA [None]
